FAERS Safety Report 14754366 (Version 1)
Quarter: 2018Q2

REPORT INFORMATION
  Report Type: Spontaneous
  Country: CO (occurrence: CO)
  Receive Date: 20180412
  Receipt Date: 20180412
  Transmission Date: 20180711
  Serious: Yes (Other)
  Sender: FDA-Public Use
  Company Number: CO-AMGEN-COLSP2017154837

PATIENT
  Age: 65 Year
  Sex: Female

DRUGS (2)
  1. ENBREL [Suspect]
     Active Substance: ETANERCEPT
     Dosage: 50 MG, SEVENTH DAY CONVERSELY AT NINTH OR TENTH DAY
     Route: 058
     Dates: start: 2014
  2. ENBREL [Suspect]
     Active Substance: ETANERCEPT
     Indication: RHEUMATOID ARTHRITIS
     Dosage: 50 MG, UNK
     Route: 058
     Dates: start: 2013

REACTIONS (7)
  - Pain [Unknown]
  - Intentional product misuse [Unknown]
  - Inflammation [Unknown]
  - Hepatitis B [Unknown]
  - Product use issue [Unknown]
  - Fatigue [Unknown]
  - Gait inability [Unknown]

NARRATIVE: CASE EVENT DATE: 2017
